FAERS Safety Report 17486604 (Version 4)
Quarter: 2020Q4

REPORT INFORMATION
  Report Type: Report from Study
  Country: None (occurrence: US)
  Receive Date: 20200303
  Receipt Date: 20201230
  Transmission Date: 20210113
  Serious: Yes (Death)
  Sender: FDA-Public Use
  Company Number: US-ABBVIE-20K-163-3301618-00

PATIENT
  Age: 60 Year
  Sex: Male

DRUGS (5)
  1. VENCLEXTA [Suspect]
     Active Substance: VENETOCLAX
     Dosage: WEEK 4
     Route: 048
  2. VENCLEXTA [Suspect]
     Active Substance: VENETOCLAX
     Route: 048
     Dates: end: 201911
  3. VENCLEXTA [Suspect]
     Active Substance: VENETOCLAX
     Indication: ACUTE MYELOID LEUKAEMIA
     Dosage: WEEK 2
     Route: 048
  4. VENCLEXTA [Suspect]
     Active Substance: VENETOCLAX
     Indication: ACUTE MYELOID LEUKAEMIA
     Dosage: WEEK 1
     Route: 048
     Dates: start: 201004
  5. VENCLEXTA [Suspect]
     Active Substance: VENETOCLAX
     Dosage: WEEK 3
     Route: 048

REACTIONS (2)
  - Metastatic neoplasm [Fatal]
  - Off label use [Unknown]

NARRATIVE: CASE EVENT DATE: 201909
